FAERS Safety Report 15932184 (Version 1)
Quarter: 2019Q1

REPORT INFORMATION
  Report Type: Spontaneous
  Country: US (occurrence: US)
  Receive Date: 20190117
  Receipt Date: 20190117
  Transmission Date: 20190417
  Serious: Yes (Hospitalization, Disabling, Other)
  Sender: FDA-Public Use
  Company Number: None

PATIENT
  Age: 74 Year
  Sex: Male
  Weight: 71.67 kg

DRUGS (11)
  1. TORVASTATIN [Concomitant]
  2. TRAZODONE [Concomitant]
     Active Substance: TRAZODONE HYDROCHLORIDE
  3. ERTRALINE [Concomitant]
  4. BABY ASPRIN 81MG [Concomitant]
  5. VITAMIN D 1000MG [Concomitant]
  6. METOPROLOL SUCCINATE. [Concomitant]
     Active Substance: METOPROLOL SUCCINATE
  7. VIT B COMPLEX [Concomitant]
  8. KEYTRUDA [Suspect]
     Active Substance: PEMBROLIZUMAB
     Indication: PRODUCT USED FOR UNKNOWN INDICATION
     Dosage: ?          OTHER ROUTE:INFUSED AT NWH?
     Dates: start: 20170120, end: 20171020
  9. GABAPENTIN. [Concomitant]
     Active Substance: GABAPENTIN
  10. METHYLPREDNISOLONE. [Concomitant]
     Active Substance: METHYLPREDNISOLONE
  11. LEVOTHYROXINE. [Concomitant]
     Active Substance: LEVOTHYROXINE

REACTIONS (8)
  - Cellulitis [None]
  - Colitis ulcerative [None]
  - Loss of personal independence in daily activities [None]
  - Respiratory syncytial virus infection [None]
  - Neuropathy peripheral [None]
  - Immunodeficiency [None]
  - Arthritis [None]
  - Pneumonia [None]

NARRATIVE: CASE EVENT DATE: 20171101
